FAERS Safety Report 21839260 (Version 1)
Quarter: 2023Q1

REPORT INFORMATION
  Report Type: Spontaneous
  Country: US (occurrence: None)
  Receive Date: 20230107
  Receipt Date: 20230107
  Transmission Date: 20230417
  Serious: Yes (Hospitalization)
  Sender: FDA-Public Use
  Company Number: None

PATIENT
  Age: 84 Year
  Sex: Male
  Weight: 87 kg

DRUGS (1)
  1. RIVAROXABAN [Suspect]
     Active Substance: RIVAROXABAN
     Dosage: 20 MG EVERY DAY PO
     Route: 048
     Dates: start: 20181219

REACTIONS (4)
  - Lower gastrointestinal haemorrhage [None]
  - Rectal ulcer [None]
  - Large intestine polyp [None]
  - Gastric haemorrhage [None]

NARRATIVE: CASE EVENT DATE: 20220803
